FAERS Safety Report 14650115 (Version 1)
Quarter: 2018Q1

REPORT INFORMATION
  Report Type: Spontaneous
  Country: US (occurrence: US)
  Receive Date: 20180316
  Receipt Date: 20180316
  Transmission Date: 20180509
  Serious: No
  Sender: FDA-Public Use
  Company Number: US-ALKERMES INC.-ALK-2018-001349

PATIENT
  Age: 28 Year
  Sex: Male

DRUGS (1)
  1. VIVITROL [Suspect]
     Active Substance: NALTREXONE
     Indication: DRUG DEPENDENCE
     Dosage: 380 MG, QMO
     Route: 030
     Dates: start: 201712

REACTIONS (7)
  - Piloerection [Unknown]
  - Withdrawal syndrome [Unknown]
  - Drug dose omission [Not Recovered/Not Resolved]
  - Drug dependence [Unknown]
  - Blood pressure increased [Unknown]
  - Substance use [Unknown]
  - Tremor [Unknown]

NARRATIVE: CASE EVENT DATE: 2018
